FAERS Safety Report 5840519-X (Version None)
Quarter: 2008Q3

REPORT INFORMATION
  Report Type: 
  Country: None (occurrence: None)
  Receive Date: 20080807
  Receipt Date: 20080807
  Transmission Date: 20090109
  Serious: Yes (Disabling)
  Sender: FDA-Public Use
  Company Number: None

PATIENT
  Age: 36 Year
  Sex: Female
  Weight: 58.9676 kg

DRUGS (1)
  1. LEVAQUIN [Suspect]
     Indication: BRONCHITIS
     Dosage: 500 MG 1/DAY PO
     Route: 048
     Dates: start: 20061106, end: 20061115

REACTIONS (8)
  - ACTIVITIES OF DAILY LIVING IMPAIRED [None]
  - ARTHROPATHY [None]
  - FEELING ABNORMAL [None]
  - FOOT DEFORMITY [None]
  - NO THERAPEUTIC RESPONSE [None]
  - PAIN [None]
  - SWELLING [None]
  - TENDON RUPTURE [None]
